FAERS Safety Report 24926562 (Version 3)
Quarter: 2025Q1

REPORT INFORMATION
  Report Type: Report from Study
  Country: IL (occurrence: IL)
  Receive Date: 20250205
  Receipt Date: 20250327
  Transmission Date: 20250409
  Serious: Yes (Other)
  Sender: ALEXION PHARMACEUTICALS
  Company Number: IL-AstraZeneca-CH-00798768AP

PATIENT
  Age: 78 Year

DRUGS (2)
  1. FASENRA [Suspect]
     Active Substance: BENRALIZUMAB
     Indication: Asthma
     Dosage: 30 MILLIGRAM, Q8W
  2. Azenil [Concomitant]

REACTIONS (8)
  - Wrong technique in product usage process [Unknown]
  - Memory impairment [Not Recovered/Not Resolved]
  - Device leakage [Unknown]
  - Illness [Unknown]
  - Inability to afford medication [Unknown]
  - Cotard^s syndrome [Unknown]
  - Asthenia [Unknown]
  - Drug ineffective [Unknown]
